FAERS Safety Report 10802637 (Version 1)
Quarter: 2015Q1

REPORT INFORMATION
  Report Type: Spontaneous
  Country: US (occurrence: US)
  Receive Date: 20150217
  Receipt Date: 20150217
  Transmission Date: 20150721
  Serious: No
  Sender: FDA-Public Use
  Company Number: US-BRACCO-011205

PATIENT
  Sex: Female

DRUGS (1)
  1. ISOVUE 370 [Suspect]
     Active Substance: IOPAMIDOL
     Indication: DIAGNOSTIC PROCEDURE
     Route: 042
     Dates: start: 201408, end: 201408

REACTIONS (1)
  - Extravasation [Recovering/Resolving]

NARRATIVE: CASE EVENT DATE: 201408
